FAERS Safety Report 5047772-3 (Version None)
Quarter: 2006Q3

REPORT INFORMATION
  Report Type: 
  Country: None (occurrence: None)
  Receive Date: 20060703
  Receipt Date: 20060622
  Transmission Date: 20061208
  Serious: Yes (Hospitalization, Other)
  Sender: FDA-Public Use
  Company Number: HQWYE824816FEB06

PATIENT
  Age: 67 Year
  Sex: Female
  Weight: 68.1 kg

DRUGS (6)
  1. RALOXIFENE, CONTROL FOR BAZEDOXIFENE ACETATE, CAPSULE) [Suspect]
     Indication: OSTEOPOROSIS
     Dosage: 60 MG 1X PER 1 DAY, ORAL
     Route: 048
     Dates: start: 20020801
  2. MULTIVITAMINS, PLAIN (MULTIMVITAMINS, PLAIN) [Concomitant]
  3. ASPIRIN [Concomitant]
  4. ACETAMINOPHEN [Concomitant]
  5. GLUCOSAMINE W/CHONDROITIN SULFATES (ASCORBIC ACID/CHONDROITIN SULFATE/ [Concomitant]
  6. CALCIUM (CALCIUM) [Concomitant]

REACTIONS (14)
  - ACUTE CORONARY SYNDROME [None]
  - AGITATION [None]
  - BLOOD THYROID STIMULATING HORMONE INCREASED [None]
  - BLOOD TRIGLYCERIDES INCREASED [None]
  - CARDIOMYOPATHY [None]
  - CAROTID ARTERY ATHEROMA [None]
  - CAROTID ARTERY STENOSIS [None]
  - DEEP VEIN THROMBOSIS [None]
  - ELECTROCARDIOGRAM ST SEGMENT DEPRESSION [None]
  - ELECTROCARDIOGRAM T WAVE INVERSION [None]
  - HEART INJURY [None]
  - HIGH DENSITY LIPOPROTEIN DECREASED [None]
  - MYOCARDIAL ISCHAEMIA [None]
  - RESPIRATORY RATE INCREASED [None]
